FAERS Safety Report 5391658-1 (Version None)
Quarter: 2007Q3

REPORT INFORMATION
  Report Type: 
  Country: None (occurrence: None)
  Receive Date: 20070719
  Receipt Date: 20070711
  Transmission Date: 20080115
  Serious: Yes (Death)
  Sender: FDA-Public Use
  Company Number: JP-SHR-JP-2007-026270

PATIENT
  Age: 74 Year
  Sex: Female

DRUGS (4)
  1. SOTALOL HCL [Suspect]
     Indication: VENTRICULAR TACHYCARDIA
     Dosage: 40 MG, 2X/DAY
     Route: 048
     Dates: start: 20040310, end: 20040321
  2. SOTALOL HCL [Suspect]
     Dosage: 60 MG, 1X/DAY
     Route: 048
     Dates: start: 20040322, end: 20040620
  3. SOTALOL HCL [Suspect]
     Dosage: 40 MG, 1X/DAY
     Route: 048
     Dates: start: 20040621, end: 20050313
  4. ARTIST [Concomitant]
     Route: 048
     Dates: start: 20040310, end: 20040315

REACTIONS (2)
  - ANOREXIA [None]
  - RENAL FAILURE CHRONIC [None]
